FAERS Safety Report 21610776 (Version 2)
Quarter: 2022Q4

REPORT INFORMATION
  Report Type: Spontaneous
  Country: SE (occurrence: None)
  Receive Date: 20221117
  Receipt Date: 20221216
  Transmission Date: 20230112
  Serious: Yes (Other)
  Sender: FDA-Public Use
  Company Number: SE-ROCHE-3216410

PATIENT
  Sex: Female

DRUGS (1)
  1. HERCEPTIN [Suspect]
     Active Substance: TRASTUZUMAB
     Indication: Product used for unknown indication
     Route: 065

REACTIONS (7)
  - Nausea [Unknown]
  - Asthenia [Unknown]
  - Ill-defined disorder [Unknown]
  - Ovarian cyst [Unknown]
  - Neoplasm malignant [Unknown]
  - Oophorectomy bilateral [Unknown]
  - Hysterectomy [Unknown]
